FAERS Safety Report 22335138 (Version 1)
Quarter: 2023Q2

REPORT INFORMATION
  Report Type: Spontaneous
  Country: ES (occurrence: ES)
  Receive Date: 20230518
  Receipt Date: 20230518
  Transmission Date: 20230721
  Serious: Yes (Other)
  Sender: FDA-Public Use
  Company Number: US-Coherus Biosciences Inc.-2023-COH-ES000229

PATIENT

DRUGS (2)
  1. RANIBIZUMAB [Suspect]
     Active Substance: RANIBIZUMAB
     Indication: Neovascular age-related macular degeneration
     Dosage: UNK
  2. CIPROFLOXACIN [Concomitant]
     Active Substance: CIPROFLOXACIN
     Indication: Prophylaxis
     Dosage: UNK, PRESCRIBED FOR 5DAYS AS PROPHYLAXIS
     Route: 048

REACTIONS (1)
  - Chronic inflammatory demyelinating polyradiculoneuropathy [Recovered/Resolved]
